FAERS Safety Report 16410081 (Version 3)
Quarter: 2019Q3

REPORT INFORMATION
  Report Type: Report from Study
  Country: US (occurrence: US)
  Receive Date: 20190610
  Receipt Date: 20190809
  Transmission Date: 20191004
  Serious: Yes (Death, Hospitalization)
  Sender: FDA-Public Use
  Company Number: US-BAUSCH-BL-2019-016537

PATIENT
  Age: 80 Year
  Sex: Male

DRUGS (1)
  1. RIFAXIMIN 200MG TABLETS [Suspect]
     Active Substance: RIFAXIMIN
     Indication: HEPATIC ENCEPHALOPATHY
     Route: 065
     Dates: start: 201905

REACTIONS (6)
  - Hypertension [Fatal]
  - Abdominal cavity drainage [Unknown]
  - Hepatic encephalopathy [Fatal]
  - Hepatic cirrhosis [Fatal]
  - Cardiac failure [Fatal]
  - Hospice care [Unknown]

NARRATIVE: CASE EVENT DATE: 201905
